FAERS Safety Report 8955064 (Version 1)
Quarter: 2012Q4

REPORT INFORMATION
  Report Type: Spontaneous
  Country: TR (occurrence: None)
  Receive Date: 20121129
  Receipt Date: 20121129
  Transmission Date: 20130627
  Serious: Yes (Hospitalization)
  Sender: FDA-Public Use
  Company Number: B0847841A

PATIENT

DRUGS (1)
  1. VALACICLOVIR HYDROCHLORIDE [Suspect]

REACTIONS (2)
  - Skin reaction [None]
  - Skin toxicity [None]
